FAERS Safety Report 13007209 (Version 1)
Quarter: 2016Q4

REPORT INFORMATION
  Report Type: Spontaneous
  Country: AE (occurrence: AE)
  Receive Date: 20161207
  Receipt Date: 20161207
  Transmission Date: 20170207
  Serious: Yes (Other)
  Sender: FDA-Public Use
  Company Number: AE-MYLANLABS-2016M1053124

PATIENT

DRUGS (6)
  1. OMEPRAZOLE. [Suspect]
     Active Substance: OMEPRAZOLE
     Indication: PRODUCT USED FOR UNKNOWN INDICATION
     Route: 065
  2. PRIMAQUINE [Interacting]
     Active Substance: PRIMAQUINE PHOSPHATE
     Indication: MALARIA
     Dosage: 15 MG/DAY OVER 14 DAYS
     Route: 065
  3. CHLOROQUINE. [Interacting]
     Active Substance: CHLOROQUINE
     Indication: MALARIA
     Dosage: 2500 MG OVER 3 DAYS
     Route: 065
  4. DOMPERIDONE [Interacting]
     Active Substance: DOMPERIDONE
     Indication: PRODUCT USED FOR UNKNOWN INDICATION
     Route: 065
  5. CHLORDIAZEPOXIDE HCL AND CLIDINIUM BROMIDE [Interacting]
     Active Substance: CHLORDIAZEPOXIDE HYDROCHLORIDE\CLIDINIUM BROMIDE
     Indication: PRODUCT USED FOR UNKNOWN INDICATION
     Route: 065
  6. MEFLOQUINE [Interacting]
     Active Substance: MEFLOQUINE
     Indication: MALARIA
     Dosage: 1500MG IN THREE DIVIDED DOSES OVER 24 HOURS
     Route: 048

REACTIONS (4)
  - Drug interaction [Recovered/Resolved]
  - Dizziness [Recovered/Resolved]
  - Chorioretinopathy [Recovered/Resolved]
  - Diplopia [Recovered/Resolved]
